FAERS Safety Report 7638507-6 (Version None)
Quarter: 2011Q3

REPORT INFORMATION
  Report Type: 
  Country: None (occurrence: None)
  Receive Date: 20110727
  Receipt Date: 20110714
  Transmission Date: 20111222
  Serious: Yes (Other)
  Sender: FDA-Public Use
  Company Number: PHHY2011US63694

PATIENT
  Age: 79 Year
  Sex: Female

DRUGS (3)
  1. PROBIOTICS [Concomitant]
  2. VITAMIN A [Concomitant]
  3. FORADIL [Suspect]
     Indication: CHRONIC OBSTRUCTIVE PULMONARY DISEASE
     Dosage: 1 DF, BID

REACTIONS (3)
  - VISUAL IMPAIRMENT [None]
  - MACULAR DEGENERATION [None]
  - VITREOUS FLOATERS [None]
